FAERS Safety Report 4961716-1 (Version None)
Quarter: 2006Q1

REPORT INFORMATION
  Report Type: 
  Country: None (occurrence: None)
  Receive Date: 20060329
  Receipt Date: 20060321
  Transmission Date: 20060701
  Serious: Yes (Hospitalization, Other)
  Sender: FDA-Public Use
  Company Number: GRWYE496722MAR06

PATIENT
  Age: 36 Year
  Sex: Female

DRUGS (5)
  1. EFFEXOR XR [Suspect]
     Indication: MAJOR DEPRESSION
     Dosage: 150 MG 1X PER 1 DAY  ORAL
     Route: 048
  2. GEODON [Suspect]
  3. REMERON [Suspect]
  4. SEROQUEL [Suspect]
     Dosage: ORAL
     Route: 048
  5. LORAZEPAM [Suspect]
     Dosage: 2.5 MG 1X PER 1 DAY ORAL
     Route: 048

REACTIONS (6)
  - COMA [None]
  - HYPOTENSION [None]
  - INTENTIONAL OVERDOSE [None]
  - RESPIRATORY DEPRESSION [None]
  - SUICIDE ATTEMPT [None]
  - TACHYCARDIA [None]
